FAERS Safety Report 7010993-4 (Version None)
Quarter: 2010Q3

REPORT INFORMATION
  Report Type: 
  Country: None (occurrence: None)
  Receive Date: 20100923
  Receipt Date: 20081020
  Transmission Date: 20110219
  Serious: No
  Sender: FDA-Public Use
  Company Number: US-WYE-H04646808

PATIENT
  Sex: Female
  Weight: 94.43 kg

DRUGS (14)
  1. EFFEXOR XR [Suspect]
     Indication: PAIN
     Route: 048
     Dates: start: 20020101, end: 20040601
  2. EFFEXOR XR [Suspect]
     Indication: NEURALGIA
     Route: 048
  3. EFFEXOR XR [Suspect]
     Route: 048
     Dates: end: 20081009
  4. EFFEXOR XR [Suspect]
     Route: 048
     Dates: start: 20081001
  5. EFFEXOR XR [Suspect]
     Dosage: TAPERED DOSE
     Route: 048
     Dates: start: 20040601
  6. ATENOLOL [Concomitant]
  7. NABUMETONE [Concomitant]
  8. VENLAFAXINE HYDROCHLORIDE [Suspect]
  9. AMBIEN [Concomitant]
  10. SINGULAIR [Concomitant]
  11. NABUMETONE [Concomitant]
  12. ALLEGRA [Concomitant]
  13. PRISTIQ [Suspect]
     Indication: NEURALGIA
     Route: 048
     Dates: start: 20081010, end: 20081001
  14. PRISTIQ [Suspect]
     Indication: PAIN
     Route: 048
     Dates: start: 20081001

REACTIONS (19)
  - CONFUSIONAL STATE [None]
  - DISTURBANCE IN ATTENTION [None]
  - DRUG INEFFECTIVE FOR UNAPPROVED INDICATION [None]
  - DRUG WITHDRAWAL SYNDROME [None]
  - DYSGEUSIA [None]
  - DYSPNOEA [None]
  - ECONOMIC PROBLEM [None]
  - FEELING ABNORMAL [None]
  - FREQUENT BOWEL MOVEMENTS [None]
  - HYPERHIDROSIS [None]
  - IMPAIRED WORK ABILITY [None]
  - MUSCULOSKELETAL CHEST PAIN [None]
  - NAUSEA [None]
  - PHOTOSENSITIVITY REACTION [None]
  - SPEECH DISORDER [None]
  - TEMPERATURE INTOLERANCE [None]
  - THINKING ABNORMAL [None]
  - UNEVALUABLE EVENT [None]
  - WEIGHT INCREASED [None]
